FAERS Safety Report 4576351-7 (Version None)
Quarter: 2005Q1

REPORT INFORMATION
  Report Type: 
  Country: None (occurrence: None)
  Receive Date: 20050207
  Receipt Date: 20050202
  Transmission Date: 20050727
  Serious: Yes (Life-Threatening)
  Sender: FDA-Public Use
  Company Number: 2005-124819-NL

PATIENT
  Age: 66 Year
  Sex: Female

DRUGS (3)
  1. MIRTAZAPINE [Suspect]
     Dosage: 15 MG QD NI
  2. ROFECOXIB [Suspect]
     Indication: ARTHRALGIA
     Dosage: 1 DF BID ORAL
     Route: 048
  3. ROFECOXIB [Suspect]
     Indication: PAIN IN EXTREMITY
     Dosage: 1 DF BID ORAL
     Route: 048

REACTIONS (2)
  - PULMONARY EMBOLISM [None]
  - THROMBOSIS [None]
